FAERS Safety Report 23610961 (Version 2)
Quarter: 2024Q1

REPORT INFORMATION
  Report Type: Report from Study
  Country: FR (occurrence: FR)
  Receive Date: 20240308
  Receipt Date: 20240315
  Transmission Date: 20240409
  Serious: Yes (Other)
  Sender: FDA-Public Use
  Company Number: FR-ASTELLAS-2024US007165

PATIENT
  Age: 59 Year
  Sex: Male

DRUGS (4)
  1. ENFORTUMAB VEDOTIN [Suspect]
     Active Substance: ENFORTUMAB VEDOTIN
     Indication: Transitional cell carcinoma
     Dosage: 110 MG, CYCLIC (CYCLE 1, DAY 1, 4 VIALS OF PADCEV 30 MG USED)
     Route: 065
     Dates: start: 20231218
  2. ENFORTUMAB VEDOTIN [Suspect]
     Active Substance: ENFORTUMAB VEDOTIN
     Dosage: 110 MG, CYCLIC (C1, D15 (3 VIALS OF PADCEV 30 MG AND 1 VIAL OF PADCEV 20 MG USED))
     Route: 065
     Dates: start: 20240102
  3. ENFORTUMAB VEDOTIN [Suspect]
     Active Substance: ENFORTUMAB VEDOTIN
     Dosage: 92 MG, CYCLIC (C2,D1 (3 VIALS OF PADCEV 30 MG AND 1 VIAL OF PADCEV 20 MG USED))
     Route: 065
     Dates: start: 20240129
  4. ENFORTUMAB VEDOTIN [Suspect]
     Active Substance: ENFORTUMAB VEDOTIN
     Dosage: 92 MG, CYCLIC (C2,D8 LAST INJECTION (3 VIALS OF PADCEV 30 MG AND 1 VIAL OF PADCEV 20 MG USED))
     Route: 065
     Dates: start: 20240205, end: 20240205

REACTIONS (2)
  - Skin toxicity [Unknown]
  - Rash pruritic [Unknown]
